FAERS Safety Report 18430786 (Version 4)
Quarter: 2021Q3

REPORT INFORMATION
  Report Type: Spontaneous
  Country: JP (occurrence: JP)
  Receive Date: 20201027
  Receipt Date: 20210819
  Transmission Date: 20211014
  Serious: Yes (Hospitalization, Other)
  Sender: FDA-Public Use
  Company Number: JP-009507513-1907JPN002957J

PATIENT
  Age: 46 Year
  Sex: Male

DRUGS (1)
  1. KEYTRUDA [Suspect]
     Active Substance: PEMBROLIZUMAB
     Indication: LUNG ADENOCARCINOMA STAGE IV
     Dosage: 200 MILLIGRAM, Q3W
     Route: 041
     Dates: start: 20180916, end: 201907

REACTIONS (4)
  - Sinusitis [Recovering/Resolving]
  - Eosinophilic oesophagitis [Recovering/Resolving]
  - Hypereosinophilic syndrome [Recovering/Resolving]
  - Gastroenteritis eosinophilic [Recovering/Resolving]

NARRATIVE: CASE EVENT DATE: 20190702
